FAERS Safety Report 4319977-8 (Version None)
Quarter: 2004Q1

REPORT INFORMATION
  Report Type: 
  Country: None (occurrence: None)
  Receive Date: 20040315
  Receipt Date: 20040107
  Transmission Date: 20041129
  Serious: No
  Sender: FDA-Public Use
  Company Number: 2004193559US

PATIENT
  Age: 74 Year
  Sex: Female

DRUGS (5)
  1. BEXTRA [Suspect]
     Dosage: 20 MG
  2. THYROID MEDICATION [Concomitant]
  3. FOSAMAX [Concomitant]
  4. ASPIRIN [Concomitant]
  5. CALCIUM [Concomitant]

REACTIONS (2)
  - BURNING SENSATION [None]
  - JOINT SWELLING [None]
